FAERS Safety Report 5895534-7 (Version None)
Quarter: 2008Q3

REPORT INFORMATION
  Report Type: 
  Country: None (occurrence: None)
  Receive Date: 20080924
  Receipt Date: 20080922
  Transmission Date: 20090109
  Serious: Yes (Other)
  Sender: FDA-Public Use
  Company Number: IT-BRISTOL-MYERS SQUIBB COMPANY-14343305

PATIENT
  Age: 81 Year
  Sex: Male

DRUGS (13)
  1. HYDROXYCARBAMIDE [Suspect]
     Indication: MYELOPROLIFERATIVE DISORDER
  2. HYDROXYCARBAMIDE [Suspect]
     Indication: ANAEMIA
  3. IMIQUIMOD 5% [Suspect]
     Indication: SKIN CANCER
     Dosage: 5%,ONCE DAILY FOR 5 DAYS PER WEEK FOR 6 TO 10 WEEKS + 5% (10 MG/CM OF SKIN CANCER)
  4. IMIQUIMOD 5% [Suspect]
     Indication: HEPATIC FAILURE
     Dosage: 5%,ONCE DAILY FOR 5 DAYS PER WEEK FOR 6 TO 10 WEEKS + 5% (10 MG/CM OF SKIN CANCER)
  5. IMIQUIMOD 5% [Suspect]
     Indication: COAGULOPATHY
     Dosage: 5%,ONCE DAILY FOR 5 DAYS PER WEEK FOR 6 TO 10 WEEKS + 5% (10 MG/CM OF SKIN CANCER)
  6. IRON [Concomitant]
     Indication: MYELOPROLIFERATIVE DISORDER
  7. IRON [Concomitant]
     Indication: ANAEMIA
  8. FOLIC ACID [Concomitant]
     Indication: MYELOPROLIFERATIVE DISORDER
  9. FOLIC ACID [Concomitant]
     Indication: ANAEMIA
  10. SPIRONOLACTONE [Concomitant]
     Indication: HEPATIC CIRRHOSIS
  11. FUROSEMIDE [Concomitant]
     Indication: HEPATIC CIRRHOSIS
  12. ALLOPURINOL [Concomitant]
     Indication: GOUT
  13. THEOPHYLLINE [Concomitant]
     Indication: BRONCHITIS CHRONIC

REACTIONS (6)
  - ACTINIC KERATOSIS [None]
  - KERATOACANTHOMA [None]
  - NAIL PIGMENTATION [None]
  - SKIN HYPERPIGMENTATION [None]
  - SQUAMOUS CELL CARCINOMA [None]
  - ULCER [None]
